FAERS Safety Report 7931601-1 (Version None)
Quarter: 2011Q4

REPORT INFORMATION
  Report Type: 
  Country: None (occurrence: None)
  Receive Date: 20111121
  Receipt Date: 20111110
  Transmission Date: 20120403
  Serious: Yes (Hospitalization)
  Sender: FDA-Public Use
  Company Number: US-BAYER-2011-075521

PATIENT
  Age: 23 Year
  Sex: Female
  Weight: 86.168 kg

DRUGS (3)
  1. YASMIN [Suspect]
     Dosage: UNK
     Dates: start: 20031001, end: 20090801
  2. DROSPIRENONE AND ETHINYL ESTRADIOL [Suspect]
     Dosage: UNK
     Dates: start: 20080801, end: 20081101
  3. TIZANIDINE HCL [Concomitant]
     Dosage: UNK
     Dates: start: 20040101

REACTIONS (2)
  - INJURY [None]
  - PULMONARY EMBOLISM [None]
